FAERS Safety Report 14683951 (Version 1)
Quarter: 2018Q1

REPORT INFORMATION
  Report Type: Spontaneous
  Country: CN (occurrence: CN)
  Receive Date: 20180327
  Receipt Date: 20180327
  Transmission Date: 20180509
  Serious: Yes (Death, Other)
  Sender: FDA-Public Use
  Company Number: CN-ROCHE-2087978

PATIENT

DRUGS (2)
  1. OXALIPLATIN. [Concomitant]
     Active Substance: OXALIPLATIN
  2. XELODA [Suspect]
     Active Substance: CAPECITABINE
     Indication: COLON CANCER
     Route: 065

REACTIONS (3)
  - Bone marrow failure [Unknown]
  - Diarrhoea [Unknown]
  - Death [Fatal]
